FAERS Safety Report 14782891 (Version 1)
Quarter: 2018Q2

REPORT INFORMATION
  Report Type: Spontaneous
  Country: US (occurrence: US)
  Receive Date: 20180412
  Receipt Date: 20180412
  Transmission Date: 20180711
  Serious: Yes (Hospitalization)
  Sender: FDA-Public Use
  Company Number: None

PATIENT
  Age: 54 Year
  Sex: Male

DRUGS (5)
  1. DEXAMETHASON [Concomitant]
     Active Substance: DEXAMETHASONE
  2. KEPPRA [Concomitant]
     Active Substance: LEVETIRACETAM
  3. TEMOZOLOMIDE , 250 MG [Suspect]
     Active Substance: TEMOZOLOMIDE
     Indication: BRAIN NEOPLASM MALIGNANT
     Dosage: 390 MG AS DIRECTED ORAL
     Route: 048
     Dates: start: 20171220
  4. TEMOZOLOMIDE, 140 MG [Suspect]
     Active Substance: TEMOZOLOMIDE
     Indication: BRAIN NEOPLASM MALIGNANT
     Dosage: 390 MG AS DIRECTED ORAL
     Route: 048
     Dates: start: 20171220
  5. COUMADIN [Concomitant]
     Active Substance: WARFARIN SODIUM

REACTIONS (1)
  - Platelet count decreased [None]

NARRATIVE: CASE EVENT DATE: 20180411
